FAERS Safety Report 4766179-7 (Version None)
Quarter: 2005Q3

REPORT INFORMATION
  Report Type: 
  Country: None (occurrence: None)
  Receive Date: 20050912
  Receipt Date: 20050907
  Transmission Date: 20060218
  Serious: Yes (Life-Threatening, Hospitalization)
  Sender: FDA-Public Use
  Company Number: US-BRISTOL-MYERS SQUIBB COMPANY-13101951

PATIENT
  Age: 58 Year
  Sex: Male

DRUGS (13)
  1. CARBOPLATIN [Suspect]
     Indication: NON-SMALL CELL LUNG CANCER METASTATIC
     Route: 042
     Dates: start: 20011023, end: 20011127
  2. CETUXIMAB [Suspect]
     Indication: NON-SMALL CELL LUNG CANCER METASTATIC
     Route: 042
     Dates: start: 20011127, end: 20011127
  3. GEMCITABINE [Suspect]
     Indication: NON-SMALL CELL LUNG CANCER METASTATIC
     Route: 042
     Dates: start: 20011023, end: 20011127
  4. CIMETIDINE [Concomitant]
  5. TRENTAL [Concomitant]
  6. DIGOXIN [Concomitant]
  7. ZOCOR [Concomitant]
  8. ISOSORBIDE [Concomitant]
  9. VITAMIN E [Concomitant]
  10. ASPIRIN [Concomitant]
  11. FOLIC ACID [Concomitant]
  12. ASCORBIC ACID [Concomitant]
  13. MULTI-VITAMIN [Concomitant]

REACTIONS (1)
  - PULMONARY EMBOLISM [None]
